FAERS Safety Report 8995113 (Version 1)
Quarter: 2012Q4

REPORT INFORMATION
  Report Type: Spontaneous
  Country: US (occurrence: None)
  Receive Date: 20121221
  Receipt Date: 20121221
  Transmission Date: 20130627
  Serious: Yes (Other)
  Sender: FDA-Public Use
  Company Number: 2012SP004867

PATIENT
  Sex: Male

DRUGS (2)
  1. FLUOROURACIL (FLUOROURACIL) [Suspect]
     Dosage: iv therapy dates .../../2011  - present
     Route: 042
     Dates: start: 2011
  2. OXALIPLATIN [Concomitant]

REACTIONS (12)
  - Laryngeal oedema [None]
  - Oedema mouth [None]
  - Incorrect drug administration rate [None]
  - Neuropathy peripheral [None]
  - Paraesthesia [None]
  - Hypoaesthesia [None]
  - Gamma-glutamyltransferase increased [None]
  - Extrasystoles [None]
  - Bradycardia [None]
  - Stomatitis [None]
  - Macrocytosis [None]
  - Hypertension [None]
